FAERS Safety Report 6794876-0 (Version None)
Quarter: 2010Q2

REPORT INFORMATION
  Report Type: 
  Country: None (occurrence: None)
  Receive Date: 20100625
  Receipt Date: 20100615
  Transmission Date: 20101027
  Serious: Yes (Hospitalization)
  Sender: FDA-Public Use
  Company Number: DE-BAYER-201027544GPV

PATIENT
  Age: 72 Year
  Sex: Male
  Weight: 76 kg

DRUGS (9)
  1. AVELOX [Suspect]
     Indication: PNEUMONIA
     Dosage: TOTAL DAILY DOSE: 400 MG  UNIT DOSE: 400 MG
     Route: 048
     Dates: start: 20100222, end: 20100225
  2. BISOPROLOL [Concomitant]
     Dosage: TOTAL DAILY DOSE: 5 MG
  3. LACTULOSE [Concomitant]
     Dosage: TOTAL DAILY DOSE: 20 MG
  4. HUMATIN [Concomitant]
     Dosage: 1-1-1
  5. ALLOPURINOL [Concomitant]
     Dosage: TOTAL DAILY DOSE: 150 MG
  6. TORSEMIDE [Concomitant]
     Dosage: TOTAL DAILY DOSE: 5 MG
  7. SYMBICORT [Concomitant]
     Dosage: 2-0-2
  8. SPIRIVA [Concomitant]
     Dosage: 1-0-0
  9. PARACODEIN [Concomitant]
     Dosage: 0-0-0-10

REACTIONS (4)
  - JAUNDICE [None]
  - LIVER FUNCTION TEST ABNORMAL [None]
  - LUNG NEOPLASM MALIGNANT [None]
  - METASTASES TO LIVER [None]
